FAERS Safety Report 13728439 (Version 1)
Quarter: 2017Q3

REPORT INFORMATION
  Report Type: Spontaneous
  Country: US (occurrence: US)
  Receive Date: 20170706
  Receipt Date: 20170706
  Transmission Date: 20171127
  Serious: Yes (Hospitalization)
  Sender: FDA-Public Use
  Company Number: None

PATIENT
  Age: 65 Year
  Sex: Female

DRUGS (1)
  1. AMPYRA [Suspect]
     Active Substance: DALFAMPRIDINE
     Indication: MULTIPLE SCLEROSIS
     Route: 048
     Dates: start: 20150710

REACTIONS (15)
  - Laboratory test abnormal [None]
  - Haematocrit decreased [None]
  - PCO2 decreased [None]
  - Blood chloride increased [None]
  - Blood urine present [None]
  - White blood cell count increased [None]
  - Dysuria [None]
  - Dysstasia [None]
  - Haemoglobin decreased [None]
  - Red blood cell count decreased [None]
  - Urine leukocyte esterase positive [None]
  - Gait disturbance [None]
  - Blood creatinine increased [None]
  - Blood urea increased [None]
  - Glycosylated haemoglobin increased [None]

NARRATIVE: CASE EVENT DATE: 20170621
